FAERS Safety Report 11082314 (Version 1)
Quarter: 2015Q2

REPORT INFORMATION
  Report Type: Spontaneous
  Country: US (occurrence: None)
  Receive Date: 20150428
  Receipt Date: 20150428
  Transmission Date: 20150821
  Serious: Yes (Other)
  Sender: FDA-Public Use
  Company Number: 2523595-2015-00120

PATIENT
  Age: 59 Year
  Sex: Male
  Weight: 66.2 kg

DRUGS (1)
  1. UVADEX [Suspect]
     Active Substance: METHOXSALEN
     Indication: LUNG TRANSPLANT REJECTION
     Dosage: RNP
     Dates: end: 20140611

REACTIONS (3)
  - Dizziness [None]
  - Hypertension [None]
  - Hyperhidrosis [None]

NARRATIVE: CASE EVENT DATE: 20140612
